FAERS Safety Report 7186847-X (Version None)
Quarter: 2010Q4

REPORT INFORMATION
  Report Type: 
  Country: None (occurrence: None)
  Receive Date: 20101222
  Receipt Date: 20101213
  Transmission Date: 20110411
  Serious: Yes (Hospitalization)
  Sender: FDA-Public Use
  Company Number: B0688744A

PATIENT
  Sex: Male

DRUGS (12)
  1. ZOPHREN [Suspect]
     Dosage: 8MG PER DAY
     Route: 042
     Dates: start: 20101123, end: 20101123
  2. ENDOXAN [Suspect]
     Indication: RESPIRATORY DISORDER
     Dosage: 1000MG PER DAY
     Route: 042
     Dates: start: 20101123, end: 20101123
  3. UROMITEXAN [Suspect]
     Dosage: 1200MG PER DAY
     Route: 042
     Dates: start: 20101123, end: 20101123
  4. CORTANCYL [Concomitant]
  5. NEXIUM [Concomitant]
  6. PARACETAMOL [Concomitant]
  7. CALCIDOSE [Concomitant]
  8. VITAMINE D3 [Concomitant]
  9. TIORFAN [Concomitant]
  10. ACUPAN [Concomitant]
  11. RIMIFON [Concomitant]
     Indication: ANTIBIOTIC PROPHYLAXIS
     Dates: start: 20100701, end: 20101022
  12. RIFADIN [Concomitant]
     Indication: ANTIBIOTIC PROPHYLAXIS
     Dates: start: 20100701, end: 20101022

REACTIONS (5)
  - HEADACHE [None]
  - MENINGITIS [None]
  - MUSCULOSKELETAL STIFFNESS [None]
  - PYREXIA [None]
  - VOMITING [None]
